FAERS Safety Report 5432119-0 (Version None)
Quarter: 2007Q3

REPORT INFORMATION
  Report Type: 
  Country: None (occurrence: None)
  Receive Date: 20070830
  Receipt Date: 20070821
  Transmission Date: 20080115
  Serious: Yes (Other)
  Sender: FDA-Public Use
  Company Number: BR-PFIZER INC-2007069977

PATIENT
  Sex: Male

DRUGS (11)
  1. LIPITOR [Suspect]
     Indication: HYPERCHOLESTEROLAEMIA
     Route: 048
  2. CONCOR [Concomitant]
     Route: 048
  3. LOSARTAN POTASSIUM [Concomitant]
     Route: 054
  4. DIAMICRON [Concomitant]
     Route: 054
  5. ASPIRIN [Concomitant]
     Route: 054
  6. SUSTRATE [Concomitant]
     Route: 048
  7. LASIX [Concomitant]
     Route: 048
  8. METFORMIN HCL [Concomitant]
     Route: 048
  9. LOSEC I.V. [Concomitant]
     Route: 048
  10. NOVALGINA [Concomitant]
     Route: 048
  11. ALDACTONE [Concomitant]
     Route: 048

REACTIONS (2)
  - CORONARY ARTERY BYPASS [None]
  - THERAPEUTIC PROCEDURE [None]
